FAERS Safety Report 8862482 (Version 1)
Quarter: 2012Q4

REPORT INFORMATION
  Report Type: 
  Country: US (occurrence: US)
  Receive Date: 20121026
  Receipt Date: 20121026
  Transmission Date: 20130627
  Serious: No
  Sender: FDA-Public Use
  Company Number: US-ALLERGAN-1206577US

PATIENT
  Age: 69 Year
  Sex: Male

DRUGS (1)
  1. ALPHAGAN [Suspect]
     Indication: DRY MACULAR DEGENERATION
     Dosage: 2 Gtt, bid
     Route: 047
     Dates: start: 20120507, end: 20120508

REACTIONS (4)
  - Off label use [Unknown]
  - Abnormal sensation in eye [Recovered/Resolved]
  - Vision blurred [Recovered/Resolved]
  - Vision blurred [Recovered/Resolved]
